FAERS Safety Report 9691135 (Version 1)
Quarter: 2013Q4

REPORT INFORMATION
  Report Type: Report from Study
  Country: US (occurrence: US)
  Receive Date: 20131115
  Receipt Date: 20131115
  Transmission Date: 20140711
  Serious: Yes (Other)
  Sender: FDA-Public Use
  Company Number: US-GLAXOSMITHKLINE-A1049758A

PATIENT
  Sex: 0

DRUGS (1)
  1. FLOVENT [Suspect]
     Indication: ASTHMA

REACTIONS (2)
  - Hypothalamo-pituitary disorder [Unknown]
  - Oral candidiasis [Unknown]
